FAERS Safety Report 5653608-X (Version None)
Quarter: 2008Q1

REPORT INFORMATION
  Report Type: 
  Country: None (occurrence: None)
  Receive Date: 20080306
  Receipt Date: 20080227
  Transmission Date: 20080703
  Serious: Yes (Other)
  Sender: FDA-Public Use
  Company Number: GB-ROCHE-550601

PATIENT
  Age: 64 Year
  Sex: Male
  Weight: 114.3 kg

DRUGS (1)
  1. ORLISTAT [Suspect]
     Indication: OBESITY
     Route: 048
     Dates: start: 20070714, end: 20080206

REACTIONS (1)
  - MYOCARDIAL INFARCTION [None]
